FAERS Safety Report 12218752 (Version 1)
Quarter: 2016Q1

REPORT INFORMATION
  Report Type: Spontaneous
  Country: US (occurrence: US)
  Receive Date: 20160329
  Receipt Date: 20160329
  Transmission Date: 20160526
  Serious: No
  Sender: FDA-Public Use
  Company Number: GXBR2015US001083

PATIENT
  Age: 67 Year
  Sex: Female
  Weight: 58.5 kg

DRUGS (3)
  1. DESONIDE. [Suspect]
     Active Substance: DESONIDE
     Indication: DRUG TOXICITY PROPHYLAXIS
     Dosage: 1 DF, BID
     Route: 061
     Dates: start: 20150322, end: 20150322
  2. FLUOROURACIL. [Concomitant]
     Active Substance: FLUOROURACIL
     Indication: DRY SKIN
     Dosage: UNK DF, UNK
     Route: 061
  3. PREMARIN [Concomitant]
     Active Substance: ESTROGENS, CONJUGATED
     Indication: PRODUCT USED FOR UNKNOWN INDICATION
     Dosage: 0.3 MG, QD
     Route: 048

REACTIONS (6)
  - Chest discomfort [Recovered/Resolved]
  - Eye swelling [Recovered/Resolved]
  - Nasal congestion [Recovered/Resolved]
  - Oropharyngeal pain [Recovered/Resolved]
  - Off label use [Recovered/Resolved]
  - Ear congestion [Recovered/Resolved]

NARRATIVE: CASE EVENT DATE: 20150322
